FAERS Safety Report 7423087-0 (Version None)
Quarter: 2011Q2

REPORT INFORMATION
  Report Type: 
  Country: None (occurrence: None)
  Receive Date: 20110419
  Receipt Date: 20110406
  Transmission Date: 20111010
  Serious: Yes (Other)
  Sender: FDA-Public Use
  Company Number: DE-JNJFOC-20110311435

PATIENT
  Sex: Male

DRUGS (1)
  1. LISTERINE ADVANCED TARTAR CONTROL [Suspect]
     Indication: PRODUCT USED FOR UNKNOWN INDICATION

REACTIONS (6)
  - DYSGEUSIA [None]
  - TONGUE DISORDER [None]
  - APPLICATION SITE BURN [None]
  - ORAL DISCOMFORT [None]
  - ORAL PAIN [None]
  - MUCOSAL DISCOLOURATION [None]
